FAERS Safety Report 6974955-5 (Version None)
Quarter: 2010Q3

REPORT INFORMATION
  Report Type: 
  Country: None (occurrence: None)
  Receive Date: 20100909
  Receipt Date: 20090116
  Transmission Date: 20110219
  Serious: No
  Sender: FDA-Public Use
  Company Number: US-WYE-H07758809

PATIENT
  Sex: Female
  Weight: 59.02 kg

DRUGS (5)
  1. PRISTIQ [Suspect]
     Indication: DEPRESSION
     Route: 048
     Dates: start: 20090113, end: 20090115
  2. ADDERALL XR 10 [Concomitant]
  3. VALIUM [Concomitant]
  4. CELEXA [Suspect]
     Dates: start: 20090113, end: 20090113
  5. CELEXA [Suspect]
     Dates: start: 20090116

REACTIONS (3)
  - ANXIETY [None]
  - DRUG WITHDRAWAL SYNDROME [None]
  - FEAR [None]
